FAERS Safety Report 11878237 (Version 1)
Quarter: 2015Q4

REPORT INFORMATION
  Report Type: Spontaneous
  Country: US (occurrence: None)
  Receive Date: 20151229
  Receipt Date: 20151229
  Transmission Date: 20160305
  Serious: No
  Sender: FDA-Public Use
  Company Number: None

PATIENT
  Age: 79 Year
  Sex: Male

DRUGS (6)
  1. CYCLOSPORINE 100MG MODIFIED IVAX [Suspect]
     Active Substance: CYCLOSPORINE
     Indication: PRURITUS
     Route: 048
     Dates: start: 20151211
  2. METOPROLOL [Concomitant]
     Active Substance: METOPROLOL
  3. ATORVASTATIN [Concomitant]
     Active Substance: ATORVASTATIN
  4. FENOFIBRATE. [Concomitant]
     Active Substance: FENOFIBRATE
  5. ZETIA [Concomitant]
     Active Substance: EZETIMIBE
  6. LORAZEPAM. [Concomitant]
     Active Substance: LORAZEPAM

REACTIONS (2)
  - Arthralgia [None]
  - Nausea [None]

NARRATIVE: CASE EVENT DATE: 20151214
